FAERS Safety Report 24091153 (Version 1)
Quarter: 2024Q3

REPORT INFORMATION
  Report Type: Spontaneous
  Country: DE (occurrence: DE)
  Receive Date: 20240715
  Receipt Date: 20240715
  Transmission Date: 20241016
  Serious: Yes (Other)
  Sender: RANBAXY
  Company Number: DE-SUN PHARMACEUTICAL INDUSTRIES LTD-2024RR-456190

PATIENT
  Age: 25 Year
  Sex: Male

DRUGS (2)
  1. EZETIMIBE [Suspect]
     Active Substance: EZETIMIBE
     Indication: Pancreatitis acute
     Dosage: 10 MILLIGRAM, DAILY
     Route: 065
  2. FENOFIBRATE [Suspect]
     Active Substance: FENOFIBRATE
     Indication: Pancreatitis acute
     Dosage: 160 MILLIGRAM, MICRONIZED, DAILY
     Route: 065

REACTIONS (1)
  - Disease recurrence [Unknown]
